FAERS Safety Report 23007867 (Version 2)
Quarter: 2024Q3

REPORT INFORMATION
  Report Type: Spontaneous
  Country: CA (occurrence: CA)
  Receive Date: 20230929
  Receipt Date: 20240716
  Transmission Date: 20241016
  Serious: Yes (Congenital Anomaly, Other)
  Sender: ORGANON
  Company Number: CA-ORGANON-O2309CAN002937

PATIENT
  Sex: Female

DRUGS (14)
  1. REMERON [Suspect]
     Active Substance: MIRTAZAPINE
     Indication: Foetal exposure during pregnancy
     Dosage: UNK
     Route: 064
  2. REMERON [Suspect]
     Active Substance: MIRTAZAPINE
     Indication: Product used for unknown indication
  3. DUPILUMAB [Suspect]
     Active Substance: DUPILUMAB
     Indication: Foetal exposure during pregnancy
     Dosage: UNK
     Route: 064
  4. DUPILUMAB [Suspect]
     Active Substance: DUPILUMAB
     Indication: Asthma
  5. FLUTICASONE FUROATE [Suspect]
     Active Substance: FLUTICASONE FUROATE
     Indication: Foetal exposure during pregnancy
     Dosage: UNK
     Route: 064
  6. FLUTICASONE FUROATE [Suspect]
     Active Substance: FLUTICASONE FUROATE
     Indication: Asthma
  7. OMALIZUMAB [Suspect]
     Active Substance: OMALIZUMAB
     Indication: Foetal exposure during pregnancy
     Dosage: UNK
     Route: 064
  8. OMALIZUMAB [Suspect]
     Active Substance: OMALIZUMAB
     Indication: Asthma
  9. PREDNISONE [Suspect]
     Active Substance: PREDNISONE
     Indication: Foetal exposure during pregnancy
     Dosage: UNK (DOSAGE FORM: NOT SPECIFIED)
     Route: 064
  10. PREDNISONE [Suspect]
     Active Substance: PREDNISONE
     Indication: Asthma
  11. TIOTROPIUM [Suspect]
     Active Substance: TIOTROPIUM
     Indication: Foetal exposure during pregnancy
     Dosage: UNK
     Route: 064
  12. TIOTROPIUM [Suspect]
     Active Substance: TIOTROPIUM
     Indication: Asthma
  13. VILANTEROL [Suspect]
     Active Substance: VILANTEROL
     Indication: Foetal exposure during pregnancy
     Dosage: UNK
     Route: 064
  14. VILANTEROL [Suspect]
     Active Substance: VILANTEROL
     Indication: Asthma

REACTIONS (8)
  - Cleft palate [Unknown]
  - Congenital hypogonadotropic hypogonadism [Unknown]
  - Foetal exposure during pregnancy [Unknown]
  - Hypopituitarism [Unknown]
  - Hypothalamo-pituitary disorder [Unknown]
  - Pharyngeal disorder [Unknown]
  - Premature baby [Unknown]
  - Secondary hypogonadism [Unknown]
